FAERS Safety Report 4925570-6 (Version None)
Quarter: 2006Q1

REPORT INFORMATION
  Report Type: 
  Country: None (occurrence: None)
  Receive Date: 20060228
  Receipt Date: 20050103
  Transmission Date: 20060701
  Serious: No
  Sender: FDA-Public Use
  Company Number: US-GLAXOSMITHKLINE-A0539086A

PATIENT
  Age: 53 Year
  Sex: Male
  Weight: 90.9 kg

DRUGS (5)
  1. LAMICTAL [Suspect]
     Indication: BIPOLAR DISORDER
     Dosage: 300MG PER DAY
     Route: 048
  2. SANDOSTATIN [Concomitant]
  3. LITHIUM [Concomitant]
  4. PREVACID [Concomitant]
  5. UNKNOWN MEDICATION [Concomitant]
     Route: 065

REACTIONS (2)
  - FAECES PALE [None]
  - GINGIVITIS [None]
